FAERS Safety Report 9107015 (Version 2)
Quarter: 2013Q3

REPORT INFORMATION
  Report Type: Report from Study
  Country: US (occurrence: US)
  Receive Date: 20130221
  Receipt Date: 20130813
  Transmission Date: 20140515
  Serious: Yes (Other)
  Sender: FDA-Public Use
  Company Number: US-ABBOTT-13P-163-1048886-00

PATIENT
  Sex: Male
  Weight: 77.18 kg

DRUGS (10)
  1. HUMIRA PEN [Suspect]
     Indication: CROHN^S DISEASE
     Dates: start: 201202
  2. ARMOUR THYROID [Concomitant]
     Indication: HYPOTHYROIDISM
  3. CENTRUM SILVER [Concomitant]
     Indication: PRODUCT USED FOR UNKNOWN INDICATION
  4. VITAMIN D3 [Concomitant]
     Indication: PRODUCT USED FOR UNKNOWN INDICATION
  5. PRED FORTE [Concomitant]
     Indication: IRITIS
     Route: 047
  6. GINKGO BILOBA [Concomitant]
     Indication: PRODUCT USED FOR UNKNOWN INDICATION
  7. FISH OIL [Concomitant]
     Indication: PRODUCT USED FOR UNKNOWN INDICATION
  8. ASPIRIN [Concomitant]
     Indication: PRODUCT USED FOR UNKNOWN INDICATION
     Dosage: 81 MG DAILY
  9. CINNAMON [Concomitant]
     Indication: PRODUCT USED FOR UNKNOWN INDICATION
  10. CO Q 10 [Concomitant]
     Indication: PRODUCT USED FOR UNKNOWN INDICATION

REACTIONS (8)
  - Arteriosclerosis coronary artery [Unknown]
  - Coronary artery disease [Unknown]
  - Lung disorder [Unknown]
  - Dyspnoea [Not Recovered/Not Resolved]
  - Urticaria [Not Recovered/Not Resolved]
  - Urticaria [Not Recovered/Not Resolved]
  - Rash [Recovered/Resolved]
  - Chest pain [Recovered/Resolved]
